FAERS Safety Report 4281203-6 (Version None)
Quarter: 2004Q1

REPORT INFORMATION
  Report Type: 
  Country: None (occurrence: None)
  Receive Date: 20040109
  Receipt Date: 20030604
  Transmission Date: 20041129
  Serious: Yes (Hospitalization)
  Sender: FDA-Public Use
  Company Number: US039162

PATIENT
  Age: 53 Year
  Sex: Female

DRUGS (4)
  1. KINERET [Suspect]
     Indication: RHEUMATOID ARTHRITIS
     Dosage: 100 MG, DAILY, SC
     Route: 058
     Dates: start: 20030101, end: 20030511
  2. HYDROXYCHLOROQUINE PHOSPHATE [Concomitant]
  3. INSULIN [Concomitant]
  4. ANTINFLAMMATORY NOS [Concomitant]

REACTIONS (1)
  - PNEUMONIA [None]
